FAERS Safety Report 7648872-1 (Version None)
Quarter: 2011Q3

REPORT INFORMATION
  Report Type: 
  Country: None (occurrence: None)
  Receive Date: 20110801
  Receipt Date: 20110722
  Transmission Date: 20111222
  Serious: Yes (Other)
  Sender: FDA-Public Use
  Company Number: PHHY2011GB65980

PATIENT
  Age: 39 Year
  Sex: Male

DRUGS (5)
  1. ZOPICLONE [Suspect]
  2. CITALOPRAM [Suspect]
  3. LANSOPRAZOLE [Suspect]
  4. RISPERIDONE [Concomitant]
  5. DIAZEPAM [Suspect]

REACTIONS (4)
  - BALANCE DISORDER [None]
  - CONFUSIONAL STATE [None]
  - LOSS OF CONSCIOUSNESS [None]
  - FEELING ABNORMAL [None]
